FAERS Safety Report 9532081 (Version 2)
Quarter: 2013Q3

REPORT INFORMATION
  Report Type: Spontaneous
  Country: CR (occurrence: CR)
  Receive Date: 20130918
  Receipt Date: 20130923
  Transmission Date: 20140515
  Serious: Yes (Hospitalization)
  Sender: FDA-Public Use
  Company Number: CR-ROCHE-1276762

PATIENT
  Age: 67 Year
  Sex: Female
  Weight: 86 kg

DRUGS (5)
  1. PERTUZUMAB [Suspect]
     Indication: BREAST CANCER
     Route: 042
     Dates: start: 20130309
  2. PERTUZUMAB [Suspect]
     Route: 042
  3. HERCEPTIN [Suspect]
     Indication: BREAST CANCER
     Route: 042
  4. HERCEPTIN [Suspect]
     Route: 042
  5. DOCETAXEL [Concomitant]
     Indication: BREAST CANCER
     Route: 042
     Dates: start: 20130304, end: 20130620

REACTIONS (1)
  - Dyspnoea [Recovered/Resolved]
